FAERS Safety Report 16723734 (Version 1)
Quarter: 2019Q3

REPORT INFORMATION
  Report Type: Spontaneous
  Country: GB (occurrence: GB)
  Receive Date: 20190821
  Receipt Date: 20190821
  Transmission Date: 20191005
  Serious: Yes (Life-Threatening, Other)
  Sender: FDA-Public Use
  Company Number: GB-SA-2019SA231187

PATIENT
  Age: 51 Year
  Sex: Female

DRUGS (8)
  1. FUROSEMIDE. [Concomitant]
     Active Substance: FUROSEMIDE
  2. TERIFLUNOMIDE. [Suspect]
     Active Substance: TERIFLUNOMIDE
     Route: 048
     Dates: start: 20181003, end: 20190707
  3. AMITRIPTYLINE [Concomitant]
     Active Substance: AMITRIPTYLINE
  4. METFORMIN [Concomitant]
     Active Substance: METFORMIN HYDROCHLORIDE
  5. CERAZETTE [DESOGESTREL] [Concomitant]
     Active Substance: DESOGESTREL
  6. GLICLAZIDE [Concomitant]
     Active Substance: GLICLAZIDE
  7. DULAGLUTIDE. [Concomitant]
     Active Substance: DULAGLUTIDE
  8. LEVOTHYROXINE. [Concomitant]
     Active Substance: LEVOTHYROXINE

REACTIONS (1)
  - Non-Hodgkin^s lymphoma [Unknown]
